FAERS Safety Report 24986559 (Version 3)
Quarter: 2025Q2

REPORT INFORMATION
  Report Type: Spontaneous
  Country: JP (occurrence: JP)
  Receive Date: 20250219
  Receipt Date: 20250604
  Transmission Date: 20250716
  Serious: Yes (Other)
  Sender: BRISTOL-MYERS SQUIBB COMPANY
  Company Number: JP-BRISTOL-MYERS SQUIBB COMPANY-2025-015698

PATIENT

DRUGS (2)
  1. YERVOY [Suspect]
     Active Substance: IPILIMUMAB
     Indication: Colorectal cancer recurrent
     Route: 041
  2. OPDIVO [Suspect]
     Active Substance: NIVOLUMAB
     Indication: Colorectal cancer recurrent
     Route: 041

REACTIONS (2)
  - Cholangitis sclerosing [Unknown]
  - Cholecystitis chronic [Unknown]
